FAERS Safety Report 12416290 (Version 3)
Quarter: 2021Q1

REPORT INFORMATION
  Report Type: Report from Study
  Country: CH (occurrence: CH)
  Receive Date: 20160530
  Receipt Date: 20210301
  Transmission Date: 20210419
  Serious: Yes (Congenital Anomaly)
  Sender: FDA-Public Use
  Company Number: CH-PFIZER INC-2016276900

PATIENT

DRUGS (9)
  1. LOPINAVIR [Concomitant]
     Active Substance: LOPINAVIR
     Dosage: UNK
     Route: 064
  2. RITONAVIR. [Concomitant]
     Active Substance: RITONAVIR
     Dosage: UNK
     Route: 064
  3. ZIDOVUDINE. [Concomitant]
     Active Substance: ZIDOVUDINE
     Dosage: UNK
     Route: 064
  4. EMTRICITABINE [Concomitant]
     Active Substance: EMTRICITABINE
     Dosage: UNK
     Route: 064
  5. LAMIVUDINE. [Concomitant]
     Active Substance: LAMIVUDINE
     Dosage: UNK
     Route: 064
  6. TOBACCO [Concomitant]
     Active Substance: TOBACCO LEAF
     Route: 064
  7. TENOFOVIR [Concomitant]
     Active Substance: TENOFOVIR
     Dosage: UNK
     Route: 064
  8. PREGABALIN. [Suspect]
     Active Substance: PREGABALIN
     Indication: NEURALGIA
     Dosage: 75 MG, DAILY
     Route: 064
  9. PREGABALIN. [Suspect]
     Active Substance: PREGABALIN
     Indication: MENTAL DISORDER

REACTIONS (4)
  - Cerebellar hypoplasia [Unknown]
  - Maternal exposure during pregnancy [Unknown]
  - Foetal malformation [Unknown]
  - Cerebral disorder [Unknown]
